FAERS Safety Report 5370086-9 (Version None)
Quarter: 2007Q2

REPORT INFORMATION
  Report Type: 
  Country: None (occurrence: None)
  Receive Date: 20070626
  Receipt Date: 20070614
  Transmission Date: 20071010
  Serious: Yes (Other)
  Sender: FDA-Public Use
  Company Number: BR-JNJFOC-20070604004

PATIENT
  Age: 83 Year
  Sex: Female
  Weight: 77 kg

DRUGS (8)
  1. RAZADYNE ER [Suspect]
     Route: 048
  2. RAZADYNE ER [Suspect]
     Indication: DEMENTIA ALZHEIMER'S TYPE
     Route: 048
  3. NATRILIX SR [Concomitant]
     Indication: HYPERTENSION
     Route: 048
  4. OROXADIN [Concomitant]
  5. ATENOLOL [Concomitant]
     Indication: HYPERTENSION
     Route: 048
  6. GLUCOVANCE [Concomitant]
     Indication: DIABETES MELLITUS
  7. NAPRIX [Concomitant]
  8. ASPIRIN [Concomitant]
     Indication: PROPHYLAXIS
     Route: 048

REACTIONS (2)
  - BONE OPERATION [None]
  - DIARRHOEA [None]
